FAERS Safety Report 4278191-5 (Version None)
Quarter: 2004Q1

REPORT INFORMATION
  Report Type: 
  Country: None (occurrence: None)
  Receive Date: 20040121
  Receipt Date: 20040102
  Transmission Date: 20041129
  Serious: Yes (Death)
  Sender: FDA-Public Use
  Company Number: A03200400007

PATIENT
  Age: 56 Year
  Sex: Female
  Weight: 129 kg

DRUGS (5)
  1. ARIXTRA [Suspect]
     Indication: PROPHYLAXIS
     Dosage: 2.5 MG QD SUBCUTANEOUS
     Route: 058
     Dates: start: 20031108, end: 20031116
  2. ARIXTRA [Suspect]
     Indication: PULMONARY EMBOLISM
     Dosage: 2.5 MG QD SUBCUTANEOUS
     Route: 058
     Dates: start: 20031108, end: 20031116
  3. ARIXTRA [Suspect]
     Indication: RESPIRATORY FAILURE
     Dosage: 2.5 MG QD SUBCUTANEOUS
     Route: 058
     Dates: start: 20031108, end: 20031116
  4. METHOTREXATE [Concomitant]
  5. SULFASALAZINE [Concomitant]

REACTIONS (2)
  - DEEP VEIN THROMBOSIS [None]
  - PULMONARY EMBOLISM [None]
